FAERS Safety Report 8446864-6 (Version None)
Quarter: 2012Q2

REPORT INFORMATION
  Report Type: 
  Country: None (occurrence: None)
  Receive Date: 20120612
  Receipt Date: 20120612
  Transmission Date: 20120825
  Serious: Yes (Other)
  Sender: FDA-Public Use
  Company Number: None

PATIENT
  Sex: Female

DRUGS (2)
  1. CIPROFLOXACIN [Suspect]
     Indication: URINARY TRACT INFECTION
     Dosage: 250MG BID PO
     Route: 048
     Dates: start: 20120531, end: 20120602
  2. PHENAZOPYRIDINE HCL TAB [Concomitant]

REACTIONS (1)
  - TENDON PAIN [None]
